FAERS Safety Report 20342346 (Version 1)
Quarter: 2022Q1

REPORT INFORMATION
  Report Type: Report from Study
  Country: US (occurrence: US)
  Receive Date: 20220117
  Receipt Date: 20220117
  Transmission Date: 20220424
  Serious: Yes (Other)
  Sender: FDA-Public Use
  Company Number: US-NOVARTISPH-NVSC2022US006817

PATIENT
  Sex: Female

DRUGS (1)
  1. ENTRESTO [Suspect]
     Active Substance: SACUBITRIL\VALSARTAN
     Indication: Product used for unknown indication
     Dosage: UNK (BEGAN TAKING ENTRESTO 3 YEARS AGO)
     Route: 065

REACTIONS (3)
  - Ejection fraction decreased [Unknown]
  - Throat clearing [Unknown]
  - Bundle branch block left [Unknown]
